FAERS Safety Report 16994000 (Version 1)
Quarter: 2019Q4

REPORT INFORMATION
  Report Type: Spontaneous
  Country: US (occurrence: US)
  Receive Date: 20190924
  Receipt Date: 20190924
  Transmission Date: 20200122
  Serious: No
  Sender: FDA-Public Use
  Company Number: None

PATIENT
  Age: 62 Year
  Sex: Male

DRUGS (4)
  1. PREDNISONE 5MG TAB [Suspect]
     Active Substance: PREDNISONE
     Indication: PROSTATE CANCER
     Route: 048
     Dates: start: 20190718
  2. ABIRATERONE. [Concomitant]
     Active Substance: ABIRATERONE ACETATE
  3. ELIGARD [Concomitant]
     Active Substance: LEUPROLIDE ACETATE
  4. GLIPIZIDE. [Concomitant]
     Active Substance: GLIPIZIDE

REACTIONS (2)
  - Glossitis [None]
  - Food intolerance [None]

NARRATIVE: CASE EVENT DATE: 20190824
